FAERS Safety Report 6396179-5 (Version None)
Quarter: 2009Q4

REPORT INFORMATION
  Report Type: 
  Country: None (occurrence: None)
  Receive Date: 20091010
  Receipt Date: 20091001
  Transmission Date: 20100525
  Serious: Yes (Other)
  Sender: FDA-Public Use
  Company Number: US-JNJCH-2009026360

PATIENT
  Age: 63 Year
  Sex: Female
  Weight: 58.1 kg

DRUGS (5)
  1. BENADRYL D ALLERGY + SINUS [Suspect]
     Indication: HYPERSENSITIVITY
     Dosage: TEXT:TWO TABLETS THREE TO FOUR TIMES DAILY
     Route: 048
  2. REQUIP [Concomitant]
     Indication: RESTLESS LEGS SYNDROME
     Dosage: TEXT:.5MG 4X DAILY
     Route: 048
  3. REQUIP [Concomitant]
     Dosage: TEXT:1MG 2 AT NIGHT
     Route: 048
  4. ALDACTONE [Concomitant]
     Indication: BLOOD PRESSURE
     Dosage: TEXT:150MG AM , 100MG PM
     Route: 048
  5. PREMARIN [Concomitant]
     Indication: HORMONE THERAPY
     Dosage: TEXT:.625MG 1X DAILY
     Route: 048

REACTIONS (4)
  - INCORRECT DRUG ADMINISTRATION DURATION [None]
  - LABELLED DRUG-DISEASE INTERACTION MEDICATION ERROR [None]
  - OVERDOSE [None]
  - THYROID FUNCTION TEST ABNORMAL [None]
